FAERS Safety Report 7080489-2 (Version None)
Quarter: 2010Q4

REPORT INFORMATION
  Report Type: 
  Country: None (occurrence: None)
  Receive Date: 20101103
  Receipt Date: 20101027
  Transmission Date: 20110411
  Serious: Yes (Life-Threatening)
  Sender: FDA-Public Use
  Company Number: JP-BAYER-201015170BYL

PATIENT
  Age: 69 Year
  Sex: Female
  Weight: 63 kg

DRUGS (27)
  1. NEXAVAR [Suspect]
     Indication: RENAL CELL CARCINOMA
     Dosage: TOTAL DAILY DOSE: 800 MG  UNIT DOSE: 200 MG
     Route: 048
     Dates: start: 20100913
  2. NEXAVAR [Suspect]
     Dosage: TOTAL DAILY DOSE: 400 MG  UNIT DOSE: 200 MG
     Route: 048
     Dates: start: 20101008, end: 20101012
  3. SUMIFERON [Concomitant]
     Route: 065
  4. SUMIFERON [Concomitant]
     Route: 065
     Dates: start: 20080407, end: 20100826
  5. GLYCERIN [Concomitant]
     Indication: PROPHYLAXIS
     Route: 062
  6. TAKEPRON [Concomitant]
     Dosage: TOTAL DAILY DOSE: 15 MG  UNIT DOSE: 15 MG
     Route: 048
  7. AMARYL [Concomitant]
     Dosage: TOTAL DAILY DOSE: 1 MG  UNIT DOSE: 1 MG
     Route: 048
  8. HIRUDOID [Concomitant]
     Route: 061
  9. HIRUDOID [Concomitant]
     Route: 061
  10. EURODIN [Concomitant]
     Dosage: UNIT DOSE: 2 MG
     Route: 048
  11. SODIUM CHLORIDE [Concomitant]
     Dosage: UNIT DOSE: 10 %
     Route: 041
     Dates: start: 20101018, end: 20101020
  12. KN [Concomitant]
     Dosage: UNIT DOSE: 500 ML
     Route: 041
     Dates: start: 20101013, end: 20101013
  13. KN [Concomitant]
     Dosage: UNIT DOSE: 500 ML
     Route: 041
     Dates: start: 20101014, end: 20101020
  14. FOY [Concomitant]
     Dosage: UNIT DOSE: 500 MG
     Route: 041
     Dates: start: 20101017, end: 20101020
  15. FOY [Concomitant]
     Dosage: UNIT DOSE: 500 MG
     Route: 041
     Dates: start: 20101015, end: 20101015
  16. FOY [Concomitant]
     Dosage: UNIT DOSE: 500 MG
     Route: 041
     Dates: start: 20101016, end: 20101016
  17. SULPERAZON [Concomitant]
     Dosage: UNIT DOSE: 1 G
     Route: 041
     Dates: start: 20101014, end: 20101014
  18. SULPERAZON [Concomitant]
     Dosage: TOTAL DAILY DOSE: 2 G  UNIT DOSE: 1 G
     Route: 041
     Dates: start: 20101015, end: 20101020
  19. SOLYUGEN G [Concomitant]
     Dosage: UNIT DOSE: 500 ML
     Route: 041
     Dates: start: 20101013, end: 20101020
  20. TAKEPRON [Concomitant]
     Dosage: UNIT DOSE: 30 MG
     Route: 041
     Dates: start: 20101016, end: 20101020
  21. NEUART [Concomitant]
     Dosage: UNIT DOSE: 1500 IU
     Route: 041
     Dates: start: 20101016, end: 20101020
  22. BEASLIMIN [Concomitant]
     Dosage: UNIT DOSE: 10 ML
     Route: 041
     Dates: start: 20101019, end: 20101020
  23. GLUCOSE [Concomitant]
     Dosage: UNIT DOSE: 5 %
     Route: 041
     Dates: start: 20101015, end: 20101020
  24. MINOFIT [Concomitant]
     Dosage: UNIT DOSE: 40 ML
     Route: 042
     Dates: start: 20101015, end: 20101020
  25. SEISHOKU [Concomitant]
     Dosage: UNIT DOSE: 50 ML
     Route: 041
     Dates: start: 20101016, end: 20101020
  26. SEISHOKU [Concomitant]
     Dosage: UNIT DOSE: 100 ML
     Route: 041
     Dates: start: 20101014, end: 20101014
  27. SEISHOKU [Concomitant]
     Dosage: TOTAL DAILY DOSE: 200 ML  UNIT DOSE: 100 ML
     Route: 041
     Dates: start: 20101015, end: 20101015

REACTIONS (3)
  - DISSEMINATED INTRAVASCULAR COAGULATION [None]
  - LIVER DISORDER [None]
  - RASH [None]
